FAERS Safety Report 13656424 (Version 1)
Quarter: 2017Q2

REPORT INFORMATION
  Report Type: Spontaneous
  Country: US (occurrence: US)
  Receive Date: 20170615
  Receipt Date: 20170615
  Transmission Date: 20170830
  Serious: Yes (Other)
  Sender: FDA-Public Use
  Company Number: None

PATIENT
  Age: 39 Year
  Sex: Male
  Weight: 70.37 kg

DRUGS (13)
  1. METHYLPREDNISOLONE. [Suspect]
     Active Substance: METHYLPREDNISOLONE
     Indication: VIRAL UPPER RESPIRATORY TRACT INFECTION
     Dosage: DISC PACKS TAPER IM/PO
     Route: 030
     Dates: start: 20160404, end: 20160505
  2. HYDROXYZINE HCL [Concomitant]
     Active Substance: HYDROXYZINE HYDROCHLORIDE
  3. IRON GLUCONATE [Concomitant]
  4. ETODOLAC. [Concomitant]
     Active Substance: ETODOLAC
  5. FLUTICASONE. [Concomitant]
     Active Substance: FLUTICASONE
  6. PROBIOTICS [Concomitant]
     Active Substance: PROBIOTICS NOS
  7. LISINOPRIL. [Concomitant]
     Active Substance: LISINOPRIL
  8. ALLEGRA [Concomitant]
     Active Substance: FEXOFENADINE HYDROCHLORIDE
  9. VITAMIN D-2 [Concomitant]
  10. PRILOSEC [Concomitant]
     Active Substance: OMEPRAZOLE MAGNESIUM
  11. GAS-X [Concomitant]
     Active Substance: DIMETHICONE
  12. TRINTELLIX [Concomitant]
     Active Substance: VORTIOXETINE HYDROBROMIDE
  13. PAPAYA ENZYMES [Concomitant]

REACTIONS (2)
  - Delirium [None]
  - Fall [None]

NARRATIVE: CASE EVENT DATE: 20160401
